FAERS Safety Report 20678062 (Version 1)
Quarter: 2022Q2

REPORT INFORMATION
  Report Type: 
  Country: None (occurrence: None)
  Receive Date: 20220406
  Receipt Date: 20220406
  Transmission Date: 20220721
  Serious: Yes (Other)
  Sender: FDA-Public Use
  Company Number: None

PATIENT

DRUGS (1)
  1. ZIOPTAN [Suspect]
     Active Substance: TAFLUPROST

REACTIONS (2)
  - Eye laser surgery [Unknown]
  - Product distribution issue [Unknown]
